FAERS Safety Report 19714106 (Version 1)
Quarter: 2021Q3

REPORT INFORMATION
  Report Type: Spontaneous
  Country: US (occurrence: US)
  Receive Date: 20210818
  Receipt Date: 20210818
  Transmission Date: 20211014
  Serious: No
  Sender: FDA-Public Use
  Company Number: US-TEVA-2021-US-1941804

PATIENT
  Age: 66 Year
  Sex: Female
  Weight: 92.1 kg

DRUGS (7)
  1. CEPHALEXIN. [Suspect]
     Active Substance: CEPHALEXIN
     Indication: ANTIBIOTIC THERAPY
     Route: 065
  2. TADALAFIL. [Concomitant]
     Active Substance: TADALAFIL
     Dates: start: 20200723
  3. AMBRISENTAN [Concomitant]
     Active Substance: AMBRISENTAN
  4. ORENITRAM [Concomitant]
     Active Substance: TREPROSTINIL
     Route: 048
  5. BACTRIM DS [Concomitant]
     Active Substance: SULFAMETHOXAZOLE\TRIMETHOPRIM
  6. ORENITRAM [Concomitant]
     Active Substance: TREPROSTINIL
     Indication: PULMONARY ARTERIAL HYPERTENSION
     Route: 048
     Dates: start: 20200723
  7. ORENITRAM [Concomitant]
     Active Substance: TREPROSTINIL
     Dosage: 2.625 MILLIGRAM DAILY;
     Route: 048

REACTIONS (1)
  - Treatment failure [Unknown]
